FAERS Safety Report 20074449 (Version 3)
Quarter: 2022Q1

REPORT INFORMATION
  Report Type: Spontaneous
  Country: US (occurrence: US)
  Receive Date: 20211116
  Receipt Date: 20220321
  Transmission Date: 20220423
  Serious: Yes (Other)
  Sender: FDA-Public Use
  Company Number: US-PFIZER INC-202101553752

PATIENT
  Age: 75 Year
  Sex: Female

DRUGS (2)
  1. BRAFTOVI [Suspect]
     Active Substance: ENCORAFENIB
     Dosage: 75 MG, UNK
  2. MEKTOVI [Suspect]
     Active Substance: BINIMETINIB
     Dosage: 15 MG, UNK

REACTIONS (6)
  - Second primary malignancy [Unknown]
  - Neoplasm malignant [Unknown]
  - Product dose omission issue [Unknown]
  - Fatigue [Unknown]
  - Emotional disorder [Unknown]
  - Stress [Unknown]

NARRATIVE: CASE EVENT DATE: 20220309
